FAERS Safety Report 6698523-8 (Version None)
Quarter: 2010Q2

REPORT INFORMATION
  Report Type: 
  Country: None (occurrence: None)
  Receive Date: 20100427
  Receipt Date: 20100419
  Transmission Date: 20101027
  Serious: Yes (Death)
  Sender: FDA-Public Use
  Company Number: B0646491A

PATIENT
  Weight: 79.8 kg

DRUGS (2)
  1. OFATUMUMAB [Suspect]
     Route: 042
     Dates: start: 20100108, end: 20100305
  2. CORTICOSTEROID [Concomitant]

REACTIONS (9)
  - ASPERGILLOSIS [None]
  - FATIGUE [None]
  - FUNGAL INFECTION [None]
  - HYPERHIDROSIS [None]
  - IMMUNOSUPPRESSION [None]
  - INFECTION [None]
  - LYMPHOMA [None]
  - PRODUCTIVE COUGH [None]
  - PYREXIA [None]
